FAERS Safety Report 21660660 (Version 3)
Quarter: 2023Q1

REPORT INFORMATION
  Report Type: Report from Study
  Country: US (occurrence: US)
  Receive Date: 20221130
  Receipt Date: 20230110
  Transmission Date: 20230418
  Serious: No
  Sender: FDA-Public Use
  Company Number: US-SA-SAC20221128001297

PATIENT
  Age: 40 Year
  Sex: Female

DRUGS (1)
  1. SARILUMAB [Suspect]
     Active Substance: SARILUMAB
     Indication: Rheumatoid arthritis
     Dosage: 200 MG, QOW
     Route: 058
     Dates: start: 202210

REACTIONS (5)
  - Skin haemorrhage [Unknown]
  - Headache [Recovered/Resolved]
  - COVID-19 [Unknown]
  - Dyspnoea [Unknown]
  - Anxiety [Unknown]
